FAERS Safety Report 22297689 (Version 1)
Quarter: 2023Q2

REPORT INFORMATION
  Report Type: Spontaneous
  Country: US (occurrence: US)
  Receive Date: 20230509
  Receipt Date: 20230509
  Transmission Date: 20230721
  Serious: No
  Sender: FDA-Public Use
  Company Number: US-002147023-NVSC2023US101311

PATIENT
  Sex: Female

DRUGS (1)
  1. RECLAST [Suspect]
     Active Substance: ZOLEDRONIC ACID
     Indication: Product used for unknown indication
     Route: 065

REACTIONS (14)
  - Muscle strength abnormal [Unknown]
  - Illness [Unknown]
  - Pyrexia [Recovered/Resolved]
  - Asthenia [Unknown]
  - Nervousness [Unknown]
  - Myalgia [Unknown]
  - Influenza like illness [Unknown]
  - Gait disturbance [Unknown]
  - Headache [Unknown]
  - Pain [Unknown]
  - Arthralgia [Unknown]
  - Pain in extremity [Unknown]
  - Fatigue [Unknown]
  - Vision blurred [Unknown]
